FAERS Safety Report 15453696 (Version 2)
Quarter: 2018Q4

REPORT INFORMATION
  Report Type: Spontaneous
  Country: US (occurrence: US)
  Receive Date: 20181001
  Receipt Date: 20181008
  Transmission Date: 20190204
  Serious: No
  Sender: FDA-Public Use
  Company Number: US-PFIZER INC-2018390357

PATIENT
  Age: 40 Year
  Sex: Female

DRUGS (3)
  1. CEFEPIME HCL [Suspect]
     Active Substance: CEFEPIME HYDROCHLORIDE
     Indication: FEBRILE NEUTROPENIA
     Dosage: 2 G, SINGLE
     Route: 042
     Dates: start: 20180904, end: 20180904
  2. ACETAMINOPHEN. [Concomitant]
     Active Substance: ACETAMINOPHEN
     Indication: FEBRILE NEUTROPENIA
     Dosage: 650 MG, SINGLE
     Route: 048
     Dates: start: 20180904, end: 20180904
  3. ZARXIO [Concomitant]
     Active Substance: FILGRASTIM-SNDZ
     Indication: FEBRILE NEUTROPENIA
     Dosage: 300 UG, SINGLE
     Route: 058
     Dates: start: 20180904, end: 20180904

REACTIONS (2)
  - Drug hypersensitivity [Unknown]
  - Rash [Recovered/Resolved]

NARRATIVE: CASE EVENT DATE: 20180904
